FAERS Safety Report 23357108 (Version 1)
Quarter: 2023Q4

REPORT INFORMATION
  Report Type: Spontaneous
  Country: US (occurrence: None)
  Receive Date: 20231230
  Receipt Date: 20231230
  Transmission Date: 20240109
  Serious: Yes (unspecified)
  Sender: FDA-Public Use
  Company Number: None

PATIENT
  Age: 35 Year
  Sex: Female
  Weight: 78.03 kg

DRUGS (1)
  1. NIFEDIPINE [Suspect]
     Active Substance: NIFEDIPINE
     Indication: Hypertension
     Dosage: 10 MG TWICE A DAY ORAL?
     Route: 048
     Dates: start: 20220819, end: 20220930

REACTIONS (5)
  - Hot flush [None]
  - Flushing [None]
  - Flushing [None]
  - Erythema [None]
  - Therapy interrupted [None]

NARRATIVE: CASE EVENT DATE: 20230930
